FAERS Safety Report 17012953 (Version 2)
Quarter: 2019Q4

REPORT INFORMATION
  Report Type: Not Available
  Country: US (occurrence: US)
  Receive Date: 20191109
  Receipt Date: 20191211
  Transmission Date: 20200122
  Serious: No
  Sender: FDA-Public Use
  Company Number: US-NEUROCRINE BIOSCIENCES INC.-2019NBI03268

PATIENT
  Sex: Female

DRUGS (10)
  1. ATORVASTATIN [Concomitant]
     Active Substance: ATORVASTATIN
  2. METOPROLOL. [Concomitant]
     Active Substance: METOPROLOL
  3. ROBAFEN [Concomitant]
     Active Substance: DEXTROMETHORPHAN HYDROBROMIDE\GUAIFENESIN
  4. ONDANSETRON [Concomitant]
     Active Substance: ONDANSETRON
  5. PANTOPRAZOLE [Concomitant]
     Active Substance: PANTOPRAZOLE
  6. SERTRALINE [Concomitant]
     Active Substance: SERTRALINE HYDROCHLORIDE
  7. INGREZZA [Suspect]
     Active Substance: VALBENAZINE
     Indication: TARDIVE DYSKINESIA
     Route: 048
     Dates: start: 20190905, end: 20190912
  8. CLOPIDOGREL [Concomitant]
     Active Substance: CLOPIDOGREL BISULFATE
  9. ADVAIR HFA [Concomitant]
     Active Substance: FLUTICASONE PROPIONATE\SALMETEROL XINAFOATE
  10. INGREZZA [Suspect]
     Active Substance: VALBENAZINE
     Indication: DYSTONIA
     Route: 048
     Dates: start: 20190913

REACTIONS (1)
  - Hallucination [Unknown]

NARRATIVE: CASE EVENT DATE: 2019
